FAERS Safety Report 5159571-2 (Version None)
Quarter: 2006Q4

REPORT INFORMATION
  Report Type: 
  Country: None (occurrence: None)
  Receive Date: 20061120
  Receipt Date: 20061103
  Transmission Date: 20070319
  Serious: Yes (Hospitalization, Other)
  Sender: FDA-Public Use
  Company Number: 2006RR-04409

PATIENT
  Age: 33 Year
  Sex: Female

DRUGS (1)
  1. METFORMIN HCL [Suspect]
     Indication: WEIGHT LOSS DIET
     Dosage: 850 MG, QD,

REACTIONS (2)
  - LEUKOCYTOCLASTIC VASCULITIS [None]
  - SELF-MEDICATION [None]
